FAERS Safety Report 18241619 (Version 4)
Quarter: 2020Q4

REPORT INFORMATION
  Report Type: Spontaneous
  Country: GB (occurrence: GB)
  Receive Date: 20200908
  Receipt Date: 20201027
  Transmission Date: 20210113
  Serious: No
  Sender: FDA-Public Use
  Company Number: GB-BEH-2020122205

PATIENT

DRUGS (2)
  1. RHOPHYLAC [Suspect]
     Active Substance: HUMAN RHO(D) IMMUNE GLOBULIN
     Indication: IMMUNE THROMBOCYTOPENIA
     Dosage: LARGE VOLUME ANTI-D
     Route: 065
  2. RHOPHYLAC [Suspect]
     Active Substance: HUMAN RHO(D) IMMUNE GLOBULIN
     Indication: IMMUNE THROMBOCYTOPENIA
     Dosage: LARGE VOLUME ANTI-D
     Route: 065

REACTIONS (4)
  - Product use in unapproved indication [Unknown]
  - Syringe issue [Unknown]
  - Device issue [Unknown]
  - No adverse event [Unknown]
